FAERS Safety Report 4870765-3 (Version None)
Quarter: 2006Q1

REPORT INFORMATION
  Report Type: 
  Country: None (occurrence: None)
  Receive Date: 20060103
  Receipt Date: 20050511
  Transmission Date: 20060701
  Serious: Yes (Hospitalization)
  Sender: FDA-Public Use
  Company Number: US-MERCK-0505USA01508

PATIENT
  Age: 61 Year
  Sex: Male
  Weight: 90 kg

DRUGS (13)
  1. VIOXX [Suspect]
     Indication: ARTHRALGIA
     Route: 048
     Dates: start: 20001001, end: 20040901
  2. ALLEGRA [Concomitant]
     Route: 065
  3. ALLOPURINOL [Concomitant]
     Route: 065
  4. FLOMAX [Concomitant]
     Route: 065
  5. NEXIUM [Concomitant]
     Indication: GASTROOESOPHAGEAL REFLUX DISEASE
     Route: 065
  6. PAROXETINE [Concomitant]
     Route: 065
  7. PROSCAR [Concomitant]
     Route: 065
  8. ALTACE [Concomitant]
     Route: 065
     Dates: start: 20010101, end: 20030101
  9. ASPIRIN [Concomitant]
     Route: 065
     Dates: start: 20010101, end: 20030501
  10. PLAVIX [Concomitant]
     Route: 065
     Dates: start: 20030101, end: 20030401
  11. ZOCOR [Concomitant]
     Route: 065
     Dates: start: 20010101, end: 20030101
  12. LIPITOR [Concomitant]
     Route: 065
     Dates: start: 20030101
  13. PAXIL [Concomitant]
     Route: 065
     Dates: start: 19960101

REACTIONS (13)
  - ACUTE CORONARY SYNDROME [None]
  - ANGINA UNSTABLE [None]
  - CHEST PAIN [None]
  - CORONARY ARTERY DISEASE [None]
  - CORONARY ARTERY STENOSIS [None]
  - DEPRESSION [None]
  - DILATATION ATRIAL [None]
  - LEFT VENTRICULAR FAILURE [None]
  - MITRAL VALVE INCOMPETENCE [None]
  - MYOCARDIAL INFARCTION [None]
  - PALPITATIONS [None]
  - TRICUSPID VALVE INCOMPETENCE [None]
  - VENTRICULAR EXTRASYSTOLES [None]
